FAERS Safety Report 9960889 (Version 1)
Quarter: 2014Q1

REPORT INFORMATION
  Report Type: Report from Study
  Country: US (occurrence: US)
  Receive Date: 20140305
  Receipt Date: 20140305
  Transmission Date: 20141002
  Serious: No
  Sender: FDA-Public Use
  Company Number: US-ABBVIE-13P-163-1109425-00

PATIENT
  Sex: Male

DRUGS (6)
  1. HUMIRA [Suspect]
     Indication: CROHN^S DISEASE
  2. ZYRTEC [Concomitant]
     Indication: SEASONAL ALLERGY
  3. SEVERAL MEDICATIONS [Concomitant]
     Indication: CROHN^S DISEASE
  4. PENTASA [Concomitant]
     Indication: CROHN^S DISEASE
  5. PURPLE PILL [Concomitant]
     Indication: CROHN^S DISEASE
  6. ALLEGRA D [Concomitant]
     Indication: SEASONAL ALLERGY

REACTIONS (2)
  - Memory impairment [Not Recovered/Not Resolved]
  - Disturbance in attention [Not Recovered/Not Resolved]
